FAERS Safety Report 5154596-5 (Version None)
Quarter: 2006Q4

REPORT INFORMATION
  Report Type: 
  Country: None (occurrence: None)
  Receive Date: 20061114
  Receipt Date: 20061031
  Transmission Date: 20070319
  Serious: Yes (Hospitalization)
  Sender: FDA-Public Use
  Company Number: 2006BL006274

PATIENT
  Age: 54 Year
  Sex: Male

DRUGS (4)
  1. DEXAMETHASONE [Suspect]
     Indication: LEUKAEMIA PLASMACYTIC
     Dosage: 40 MILLIGRAMS; 3 CYCLES
  2. ANDRIAMYCIN (DOXORUBICIN) [Suspect]
     Indication: LEUKAEMIA PLASMACYTIC
     Dosage: 9 MILLIGRAMS PER SQUARE METER; 3 CYCLES
  3. VELCADE [Suspect]
     Indication: LEUKAEMIA PLASMACYTIC
     Dosage: 1 MILLIGRAMS PER SQUARE METERP 3 CYCLES
  4. DOXORUBICIN HCL [Concomitant]

REACTIONS (1)
  - PARAESTHESIA [None]
